FAERS Safety Report 5562973-3 (Version None)
Quarter: 2007Q4

REPORT INFORMATION
  Report Type: 
  Country: None (occurrence: None)
  Receive Date: 20071212
  Receipt Date: 20071212
  Transmission Date: 20080405
  Serious: Yes (Other)
  Sender: FDA-Public Use
  Company Number: None

PATIENT
  Age: 45 Year
  Sex: Female
  Weight: 62.5964 kg

DRUGS (1)
  1. QUASENSE [Suspect]
     Indication: CONTRACEPTION
     Dosage: ONE TABLET PER DAY 3 MONTHS PO
     Route: 048
     Dates: start: 20061115, end: 20071002

REACTIONS (9)
  - ABDOMINAL DISTENSION [None]
  - ADVERSE DRUG REACTION [None]
  - DEPRESSION [None]
  - FATIGUE [None]
  - IRRITABILITY [None]
  - LIBIDO DECREASED [None]
  - MUSCLE SPASMS [None]
  - THINKING ABNORMAL [None]
  - WEIGHT INCREASED [None]
